FAERS Safety Report 4697214-2 (Version None)
Quarter: 2005Q2

REPORT INFORMATION
  Report Type: 
  Country: None (occurrence: None)
  Receive Date: 20050622
  Receipt Date: 20050615
  Transmission Date: 20051028
  Serious: Yes (Disabling)
  Sender: FDA-Public Use
  Company Number: US-GLAXOSMITHKLINE-A0562805A

PATIENT
  Age: 54 Year
  Sex: Female

DRUGS (4)
  1. LAMICTAL [Suspect]
     Indication: BIPOLAR DISORDER
     Route: 048
     Dates: start: 20031201
  2. SYNTHROID [Concomitant]
  3. CYMBALTA [Concomitant]
  4. SEROQUEL [Concomitant]

REACTIONS (2)
  - DIZZINESS [None]
  - VISUAL DISTURBANCE [None]
